FAERS Safety Report 8573900-9 (Version None)
Quarter: 2012Q3

REPORT INFORMATION
  Report Type: 
  Country: None (occurrence: None)
  Receive Date: 20120806
  Receipt Date: 20120509
  Transmission Date: 20120928
  Serious: No
  Sender: FDA-Public Use
  Company Number: US-GLAXOSMITHKLINE-A0976975A

PATIENT
  Age: 57 Year
  Sex: Female

DRUGS (7)
  1. CELEBREX [Concomitant]
  2. CALCIUM [Concomitant]
  3. PROVENTIL [Concomitant]
  4. FLUTICASONE PROPIONATE [Suspect]
     Indication: ASTHMA
     Dosage: 2PUFF TWICE PER DAY
     Route: 055
     Dates: start: 20090101
  5. VITAMIN B-12 [Concomitant]
  6. MULTI-VITAMIN [Concomitant]
  7. VITAMIN [Concomitant]
     Indication: SUPPLEMENTATION THERAPY

REACTIONS (6)
  - WEIGHT INCREASED [None]
  - INCREASED APPETITE [None]
  - CHEST DISCOMFORT [None]
  - DYSPNOEA [None]
  - DYSPNOEA EXERTIONAL [None]
  - PHARYNGEAL DISORDER [None]
